FAERS Safety Report 24444866 (Version 2)
Quarter: 2024Q4

REPORT INFORMATION
  Report Type: Report from Study
  Country: US (occurrence: US)
  Receive Date: 20241016
  Receipt Date: 20241017
  Transmission Date: 20250114
  Serious: No
  Sender: ROCHE
  Company Number: US-ROCHE-3039409

PATIENT
  Age: 45 Year
  Sex: Male

DRUGS (1)
  1. RITUXAN [Suspect]
     Active Substance: RITUXIMAB
     Indication: Multiple sclerosis
     Dosage: DATE OF SERVICE: 25/FEB/2022, 28/FEB/2022,25/AUG/2022, 27/FEB/2023, 28/AUG/2023
     Route: 065

REACTIONS (8)
  - Off label use [Unknown]
  - Gait disturbance [Unknown]
  - Cognitive disorder [Unknown]
  - Balance disorder [Unknown]
  - Gait disturbance [Unknown]
  - Muscle atrophy [Unknown]
  - Asthenia [Unknown]
  - Muscular weakness [Unknown]
